FAERS Safety Report 6861125-4 (Version None)
Quarter: 2010Q3

REPORT INFORMATION
  Report Type: 
  Country: None (occurrence: None)
  Receive Date: 20100720
  Receipt Date: 20100708
  Transmission Date: 20110219
  Serious: Yes (Other)
  Sender: FDA-Public Use
  Company Number: US-PFIZER INC-2010071383

PATIENT
  Sex: Male
  Weight: 74.83 kg

DRUGS (9)
  1. CHANTIX [Suspect]
     Indication: SMOKING CESSATION THERAPY
     Dosage: 0.5 MG, 2X/DAY
     Route: 048
     Dates: start: 20100531
  2. CHANTIX [Suspect]
     Dosage: UNK
  3. TIMOLOL [Concomitant]
     Indication: CARDIAC DISORDER
     Dosage: 50 MG, 1X/DAY
     Route: 048
  4. ATIVAN [Concomitant]
     Indication: DEPRESSION
     Dosage: UNK
  5. ATIVAN [Concomitant]
     Indication: ANXIETY
  6. WELLBUTRIN [Concomitant]
     Indication: DEPRESSION
     Dosage: 300 MG, 1X/DAY
  7. WELLBUTRIN [Concomitant]
     Indication: ANXIETY
  8. DEPAKOTE [Concomitant]
     Indication: DEPRESSION
     Dosage: 500 MG, 1X/DAY
  9. DEPAKOTE [Concomitant]
     Indication: ANXIETY

REACTIONS (6)
  - ANXIETY [None]
  - DEPRESSION [None]
  - HALLUCINATION [None]
  - HYPOACUSIS [None]
  - SLEEP DISORDER [None]
  - SUICIDAL IDEATION [None]
